FAERS Safety Report 13021103 (Version 3)
Quarter: 2017Q1

REPORT INFORMATION
  Report Type: Spontaneous
  Country: US (occurrence: US)
  Receive Date: 20161213
  Receipt Date: 20170324
  Transmission Date: 20170428
  Serious: No
  Sender: FDA-Public Use
  Company Number: US-009507513-1612USA004223

PATIENT
  Age: 19 Year
  Sex: Female
  Weight: 81.18 kg

DRUGS (2)
  1. NEXPLANON [Suspect]
     Active Substance: ETONOGESTREL
     Dosage: IMPLANT
     Route: 059
     Dates: start: 20161201
  2. NEXPLANON [Suspect]
     Active Substance: ETONOGESTREL
     Dosage: 1 IMPLANT/ 3 YEARS
     Route: 059
     Dates: start: 20161201, end: 20161201

REACTIONS (3)
  - Product quality issue [Unknown]
  - Complication of device insertion [Recovered/Resolved]
  - No adverse event [Unknown]

NARRATIVE: CASE EVENT DATE: 20161201
